FAERS Safety Report 7506103-7 (Version None)
Quarter: 2011Q2

REPORT INFORMATION
  Report Type: 
  Country: None (occurrence: None)
  Receive Date: 20110526
  Receipt Date: 20110525
  Transmission Date: 20111010
  Serious: Yes (Death)
  Sender: FDA-Public Use
  Company Number: BR-B.I. PHARMACEUTICALS,INC./RIDGEFIELD-2011-BR-00524BR

PATIENT
  Age: 74 Year
  Sex: Female

DRUGS (2)
  1. MICARDIS [Suspect]
     Indication: HYPERTENSION
     Dosage: 80 MG
     Dates: start: 20110301, end: 20110427
  2. UNSPECIFIED MEDICATION [Concomitant]

REACTIONS (1)
  - CARDIAC ARREST [None]
